FAERS Safety Report 9067197 (Version 1)
Quarter: 2013Q1

REPORT INFORMATION
  Report Type: Spontaneous
  Country: US (occurrence: US)
  Receive Date: 20130201
  Receipt Date: 20130201
  Transmission Date: 20140127
  Serious: Yes (Other)
  Sender: FDA-Public Use
  Company Number: US-BAYER-2013-013751

PATIENT
  Age: 78 Year
  Sex: Male
  Weight: 79.38 kg

DRUGS (6)
  1. XARELTO [Suspect]
     Route: 048
     Dates: start: 20130117
  2. ACETYLSALICYLIC ACID({=100 MG) [Suspect]
     Indication: PROPHYLAXIS
     Dosage: 81 MG, UNK
     Route: 065
  3. PANTOPRAZOLE [Suspect]
     Indication: PRODUCT USED FOR UNKNOWN INDICATION
     Dosage: 40 MG, QD
     Route: 048
     Dates: start: 20130117
  4. FLUDROCORTISON [Concomitant]
     Indication: HYPOTENSION
     Dosage: .1 MG, BID
     Route: 048
  5. PRAVASTATIN [Concomitant]
     Indication: BLOOD CHOLESTEROL ABNORMAL
     Dosage: 20 MG, QD
     Route: 048
  6. COQ10 [Concomitant]
     Indication: NUTRITIONAL SUPPLEMENTATION
     Dosage: 100 MG, QD
     Route: 048

REACTIONS (3)
  - Chromaturia [Not Recovered/Not Resolved]
  - Urine viscosity abnormal [Not Recovered/Not Resolved]
  - Inappropriate schedule of drug administration [Not Recovered/Not Resolved]
